FAERS Safety Report 13619564 (Version 2)
Quarter: 2019Q1

REPORT INFORMATION
  Report Type: Spontaneous
  Country: FR (occurrence: FR)
  Receive Date: 20170606
  Receipt Date: 20190326
  Transmission Date: 20190417
  Serious: Yes (Hospitalization)
  Sender: FDA-Public Use
  Company Number: FR-MERCK KGAA-2021608

PATIENT
  Age: 64 Year
  Sex: Female
  Weight: 114 kg

DRUGS (22)
  1. PRAZEPAM [Suspect]
     Active Substance: PRAZEPAM
     Route: 048
  2. LIPANTHYL [Suspect]
     Active Substance: FENOFIBRATE
     Route: 048
  3. COKENZEN [Suspect]
     Active Substance: CANDESARTAN CILEXETIL\HYDROCHLOROTHIAZIDE
     Route: 048
     Dates: end: 201704
  4. ACTISKENAN [Suspect]
     Active Substance: MORPHINE SULFATE
     Route: 048
  5. DEPAMIDE [Suspect]
     Active Substance: VALPROMIDE
     Route: 048
  6. EUTHYROX [Suspect]
     Active Substance: LEVOTHYROXINE SODIUM
     Indication: HYPOTHYROIDISM
     Route: 048
  7. CELEBREX [Suspect]
     Active Substance: CELECOXIB
     Route: 048
  8. DEPAMIDE [Suspect]
     Active Substance: VALPROMIDE
     Route: 048
  9. EFFERALGAN [Suspect]
     Active Substance: ACETAMINOPHEN
     Route: 048
  10. LIPANTHYL [Suspect]
     Active Substance: FENOFIBRATE
     Route: 048
  11. NOCTAMIDE [Suspect]
     Active Substance: LORMETAZEPAM
     Route: 048
  12. BISOPROLOL [Suspect]
     Active Substance: BISOPROLOL
     Route: 048
  13. NOCTAMIDE [Suspect]
     Active Substance: LORMETAZEPAM
     Route: 048
  14. LASILIX [Suspect]
     Active Substance: FUROSEMIDE
     Route: 048
  15. AMLOR [Suspect]
     Active Substance: AMLODIPINE BESYLATE
     Route: 048
     Dates: end: 201704
  16. AMLOR [Suspect]
     Active Substance: AMLODIPINE BESYLATE
     Route: 048
     Dates: end: 201704
  17. SPASFON LYOC [Suspect]
     Active Substance: PHLOROGLUCINOL
     Route: 048
  18. INEXIUM [Suspect]
     Active Substance: ESOMEPRAZOLE
     Route: 048
  19. LASILIX [Suspect]
     Active Substance: FUROSEMIDE
     Route: 048
  20. INEXIUM [Suspect]
     Active Substance: ESOMEPRAZOLE
     Route: 048
  21. VENLAFAXINE [Suspect]
     Active Substance: VENLAFAXINE HYDROCHLORIDE
     Route: 048
  22. VENLAFAXINE [Suspect]
     Active Substance: VENLAFAXINE HYDROCHLORIDE
     Route: 048

REACTIONS (3)
  - Oedema peripheral [Recovered/Resolved]
  - Condition aggravated [Recovered/Resolved]
  - Weight increased [Unknown]

NARRATIVE: CASE EVENT DATE: 2016
